FAERS Safety Report 7672265-4 (Version None)
Quarter: 2011Q3

REPORT INFORMATION
  Report Type: 
  Country: None (occurrence: None)
  Receive Date: 20110804
  Receipt Date: 20110726
  Transmission Date: 20111222
  Serious: Yes (Other)
  Sender: FDA-Public Use
  Company Number: 994106

PATIENT
  Sex: Female

DRUGS (4)
  1. DOXORUBICIN HCL [Suspect]
     Indication: NEUROBLASTOMA
  2. ETOPOSIDE [Suspect]
     Indication: NEUROBLASTOMA
  3. CYCLOPHOSPHAMIDE [Suspect]
     Indication: NEUROBLASTOMA
  4. CARBOPLATIN [Suspect]
     Indication: NEUROBLASTOMA

REACTIONS (2)
  - RENAL ARTERY STENOSIS [None]
  - AORTIC STENOSIS [None]
